FAERS Safety Report 23810182 (Version 1)
Quarter: 2024Q2

REPORT INFORMATION
  Report Type: Spontaneous
  Country: US (occurrence: US)
  Receive Date: 20240502
  Receipt Date: 20240502
  Transmission Date: 20240715
  Serious: No
  Sender: FDA-Public Use
  Company Number: US-PFIZER INC-202400098568

PATIENT
  Age: 37 Year
  Sex: Female

DRUGS (15)
  1. IBRANCE [Suspect]
     Active Substance: PALBOCICLIB
     Dosage: 125 MG, CYCLIC: 1 CAPSULE BY MOUTH DAILY FOR 3 WEEKS ON THEN 1 WEEK OFF
     Dates: start: 20240419
  2. NURTEC ODT [Concomitant]
     Active Substance: RIMEGEPANT SULFATE
  3. IPRATROPIUM BROMIDE [Concomitant]
     Active Substance: IPRATROPIUM BROMIDE\IPRATROPIUM BROMIDE ANHYDROUS
  4. WEGOVY [Concomitant]
     Active Substance: SEMAGLUTIDE
  5. RIZATRIPTAN [Concomitant]
     Active Substance: RIZATRIPTAN
  6. ALPRAZOLAM [Concomitant]
     Active Substance: ALPRAZOLAM
  7. TIZANIDINE HYDROCHLORIDE [Concomitant]
     Active Substance: TIZANIDINE HYDROCHLORIDE
  8. IRON [Concomitant]
     Active Substance: IRON
  9. VITAMIN A [Concomitant]
     Active Substance: VITAMIN A
  10. CALCIUM [Concomitant]
     Active Substance: CALCIUM
  11. ANASTROZOLE [Concomitant]
     Active Substance: ANASTROZOLE
  12. ONDANSETRON HYDROCHLORIDE [Concomitant]
     Active Substance: ONDANSETRON HYDROCHLORIDE
  13. MAGNESIUM [Concomitant]
     Active Substance: MAGNESIUM
  14. LIDOCAINE [Concomitant]
     Active Substance: LIDOCAINE
  15. RIBONUCLEIC ACID [Concomitant]
     Active Substance: RIBONUCLEIC ACID

REACTIONS (6)
  - Nausea [Unknown]
  - Dyspepsia [Unknown]
  - Diarrhoea [Unknown]
  - Dyspepsia [Unknown]
  - Fatigue [Unknown]
  - Rhinorrhoea [Unknown]
